FAERS Safety Report 5276547-5 (Version None)
Quarter: 2007Q1

REPORT INFORMATION
  Report Type: 
  Country: None (occurrence: None)
  Receive Date: 20061213
  Receipt Date: 20040128
  Transmission Date: 20070707
  Serious: Yes (Hospitalization)
  Sender: FDA-Public Use
  Company Number: 2004UW01604

PATIENT
  Age: 40 Year
  Sex: Male

DRUGS (3)
  1. SEROQUEL [Suspect]
     Indication: PSYCHOTIC DISORDER
     Dosage: 1200 MG DAILY PO
     Route: 048
  2. EFFEXOR XR [Suspect]
     Dosage: 150 MD QD
  3. PROLIXIN DECANOATE [Suspect]
     Dosage: 50 MG Q2WK

REACTIONS (1)
  - TREMOR [None]
